FAERS Safety Report 17828329 (Version 1)
Quarter: 2020Q2

REPORT INFORMATION
  Report Type: Spontaneous
  Country: US (occurrence: US)
  Receive Date: 20200527
  Receipt Date: 20200527
  Transmission Date: 20200714
  Serious: Yes (Hospitalization)
  Sender: FDA-Public Use
  Company Number: None

PATIENT
  Age: 79 Year
  Sex: Male
  Weight: 88 kg

DRUGS (3)
  1. LENALIDOMIDE (CC-5013) [Suspect]
     Active Substance: LENALIDOMIDE
     Dates: end: 20190630
  2. VELCADE [Suspect]
     Active Substance: BORTEZOMIB
     Dates: end: 20171124
  3. DEXAMETHASONE. [Suspect]
     Active Substance: DEXAMETHASONE
     Dates: end: 20180815

REACTIONS (6)
  - Herpes zoster [None]
  - Therapy cessation [None]
  - Balance disorder [None]
  - Asthenia [None]
  - Fall [None]
  - Platelet count decreased [None]

NARRATIVE: CASE EVENT DATE: 20190630
